FAERS Safety Report 8504147-X (Version None)
Quarter: 2012Q2

REPORT INFORMATION
  Report Type: 
  Country: None (occurrence: None)
  Receive Date: 20120405
  Receipt Date: 20110309
  Transmission Date: 20120825
  Serious: Yes (Other)
  Sender: FDA-Public Use
  Company Number: PHHY2010US75458

PATIENT
  Age: 71 Year
  Sex: Female
  Weight: 121 kg

DRUGS (8)
  1. PRAVASTATIN [Concomitant]
  2. TRICOR [Concomitant]
  3. RECLAST [Suspect]
     Indication: OSTEOPOROSIS
     Dosage: INTRAVENOUS
     Route: 042
     Dates: start: 20100909
  4. FENOFIBRATE [Concomitant]
  5. DIGOXIN [Concomitant]
  6. AMLODIPINE [Concomitant]
  7. FLONASE [Concomitant]
  8. ASPIRIN [Concomitant]

REACTIONS (4)
  - NECK PAIN [None]
  - CHEST PAIN [None]
  - MYALGIA [None]
  - PAIN [None]
